FAERS Safety Report 10599223 (Version 2)
Quarter: 2014Q4

REPORT INFORMATION
  Report Type: Report from Study
  Country: CA (occurrence: CA)
  Receive Date: 20141121
  Receipt Date: 20141121
  Transmission Date: 20150529
  Serious: Yes (Other)
  Sender: FDA-Public Use
  Company Number: CA-BAYER-2013-116871

PATIENT
  Age: 60 Year
  Sex: Male

DRUGS (5)
  1. STIVARGA [Suspect]
     Active Substance: REGORAFENIB
     Indication: COLORECTAL CANCER METASTATIC
     Dosage: 160 MG, ONCE A DAY
     Route: 048
     Dates: start: 20130923, end: 201410
  2. ZOMETA [Concomitant]
     Active Substance: ZOLEDRONIC ACID
     Dosage: AS DIRECTED
  3. TUSSIONEX [HYDROCODONE,PHENYLTOLOXAMINE] [Concomitant]
     Dosage: UNK, PRN
  4. DILAUDID [Concomitant]
     Active Substance: HYDROMORPHONE HYDROCHLORIDE
     Dosage: 4 MG, PRN
     Route: 048
  5. MORPHINE [Concomitant]
     Active Substance: MORPHINE

REACTIONS (38)
  - Hypotension [Recovered/Resolved]
  - Hypertension [None]
  - Haemoptysis [None]
  - Constipation [Recovering/Resolving]
  - Decreased appetite [None]
  - Fatigue [None]
  - Procedural pain [None]
  - Colorectal cancer metastatic [None]
  - Skeletal injury [None]
  - Dehydration [None]
  - Dizziness [Recovering/Resolving]
  - Balance disorder [Recovering/Resolving]
  - Pleural effusion [None]
  - Loss of consciousness [None]
  - Weight decreased [None]
  - Device leakage [None]
  - Skin exfoliation [Recovered/Resolved]
  - Hypertension [None]
  - Arthralgia [Recovered/Resolved]
  - Pruritus [Unknown]
  - Blister [Recovered/Resolved]
  - Sternal fracture [None]
  - Vomiting [None]
  - Intestinal obstruction [Recovered/Resolved]
  - Chest pain [None]
  - Acne [None]
  - Constipation [None]
  - Hyperaesthesia [None]
  - Chest pain [None]
  - Pain in extremity [Recovering/Resolving]
  - Constipation [Recovered/Resolved]
  - Abdominal pain [Recovering/Resolving]
  - Vomiting [None]
  - Pyrexia [None]
  - Balance disorder [None]
  - Fall [None]
  - Pruritus [None]
  - Fatigue [Recovering/Resolving]

NARRATIVE: CASE EVENT DATE: 2013
